FAERS Safety Report 14964219 (Version 1)
Quarter: 2018Q2

REPORT INFORMATION
  Report Type: Spontaneous
  Country: JP (occurrence: JP)
  Receive Date: 20180601
  Receipt Date: 20180601
  Transmission Date: 20180711
  Serious: Yes (Death)
  Sender: FDA-Public Use
  Company Number: JP-EISAI MEDICAL RESEARCH-EC-2017-030451

PATIENT
  Age: 45 Year
  Sex: Male
  Weight: 71 kg

DRUGS (8)
  1. LENVIMA [Suspect]
     Active Substance: LENVATINIB
     Route: 048
     Dates: start: 20151112, end: 20151118
  2. LENVIMA [Suspect]
     Active Substance: LENVATINIB
     Route: 048
     Dates: start: 20151119, end: 20160107
  3. RANMARK [Concomitant]
     Active Substance: DENOSUMAB
     Indication: THYROID DISORDER
     Dosage: UNKNOWN
     Route: 065
     Dates: start: 20150715
  4. LEVOTHYROXINE SODIUM. [Concomitant]
     Active Substance: LEVOTHYROXINE SODIUM
     Indication: THYROID DISORDER
     Dosage: UNKNOWN
     Route: 065
  5. PASTARON [Concomitant]
     Active Substance: UREA
     Indication: PROPHYLAXIS
     Dosage: UNKNOWN
     Route: 065
  6. LENVIMA [Suspect]
     Active Substance: LENVATINIB
     Route: 048
     Dates: start: 20150704, end: 20151111
  7. UREPEARL [Concomitant]
     Active Substance: UREA
     Indication: PROPHYLAXIS
     Dosage: UNKNOWN
     Route: 065
     Dates: start: 20150916
  8. LENVIMA [Suspect]
     Active Substance: LENVATINIB
     Indication: MEDULLARY THYROID CANCER
     Route: 048
     Dates: start: 20150617, end: 20150701

REACTIONS (1)
  - Malignant neoplasm progression [Fatal]

NARRATIVE: CASE EVENT DATE: 20161011
